FAERS Safety Report 5532869-1 (Version None)
Quarter: 2007Q4

REPORT INFORMATION
  Report Type: 
  Country: None (occurrence: None)
  Receive Date: 20071204
  Receipt Date: 20071122
  Transmission Date: 20080405
  Serious: Yes (Hospitalization, Other)
  Sender: FDA-Public Use
  Company Number: HU-BAYER-200717003GPV

PATIENT
  Sex: Male

DRUGS (3)
  1. GLUCOBAY [Suspect]
     Indication: TYPE 2 DIABETES MELLITUS
     Route: 048
     Dates: start: 20070913
  2. ATORVA TEVA / ATORVASTATIN [Concomitant]
     Indication: ARTERIOSCLEROSIS
     Route: 048
  3. NOOTROPIL [Concomitant]
     Indication: ARTERIOSCLEROSIS
     Route: 042
     Dates: start: 20071010

REACTIONS (2)
  - ANGINA PECTORIS [None]
  - MYOCARDIAL ISCHAEMIA [None]
